FAERS Safety Report 6535622-5 (Version None)
Quarter: 2010Q1

REPORT INFORMATION
  Report Type: 
  Country: None (occurrence: None)
  Receive Date: 20100113
  Receipt Date: 20100106
  Transmission Date: 20100710
  Serious: Yes (Hospitalization)
  Sender: FDA-Public Use
  Company Number: PHEH2009US17877

PATIENT
  Sex: Male

DRUGS (13)
  1. EXJADE [Suspect]
     Indication: SICKLE CELL ANAEMIA
     Dosage: 1500 MG DAILY
     Route: 048
     Dates: start: 20070630
  2. EXJADE [Suspect]
     Indication: HAEMOCHROMATOSIS
     Dosage: UNK
  3. EXJADE [Suspect]
     Dosage: 1500 MG/DAY
     Dates: start: 20091014
  4. KLONOPIN [Concomitant]
     Dosage: 0.5 (UNITS UNKNOWN) 4 TIMES A DAY
     Route: 048
  5. BENADRYL [Concomitant]
     Indication: PRURITUS
     Dosage: UNK
     Route: 048
  6. FOLIC ACID [Concomitant]
     Dosage: 1 MG DAILY
     Route: 048
  7. HEPARIN [Concomitant]
     Dosage: 10000 UNITS, 98 HOURS
  8. HYDROMORPHONE [Concomitant]
     Dosage: 4 MG, 93 HOURS
     Route: 048
  9. OXYCONTIN [Concomitant]
     Route: 048
  10. PHENERGAN HCL [Concomitant]
     Dosage: 25 MG, 93 HOURS PRN
  11. SILDENAFIL [Concomitant]
     Dosage: 20 MG, TID
     Route: 048
  12. RESTORIL [Concomitant]
     Dosage: 30 MG
     Route: 048
  13. NEXIUM [Concomitant]
     Dosage: 1 TABLET DAILY

REACTIONS (2)
  - SICKLE CELL ANAEMIA WITH CRISIS [None]
  - VENOOCCLUSIVE DISEASE [None]
